FAERS Safety Report 11346855 (Version 1)
Quarter: 2015Q3

REPORT INFORMATION
  Report Type: Spontaneous
  Country: US (occurrence: US)
  Receive Date: 20150803
  Receipt Date: 20150803
  Transmission Date: 20151125
  Serious: Yes (Other)
  Sender: FDA-Public Use
  Company Number: US-ELI_LILLY_AND_COMPANY-US200910007346

PATIENT
  Sex: Male
  Weight: 68.03 kg

DRUGS (1)
  1. ZYPREXA [Suspect]
     Active Substance: OLANZAPINE
     Indication: SCHIZOPHRENIA
     Dosage: 1 D/F, UNK

REACTIONS (12)
  - Mumps [Unknown]
  - Blood cholesterol [Unknown]
  - Hypertension [Unknown]
  - Cholelithiasis [Unknown]
  - Weight decreased [Unknown]
  - Blood triglycerides increased [Unknown]
  - Acetonaemia [Unknown]
  - Polyuria [Unknown]
  - Pancreatitis [Unknown]
  - Hyperglycaemia [Unknown]
  - Diabetes mellitus [Unknown]
  - Vision blurred [Unknown]
